FAERS Safety Report 22626090 (Version 1)
Quarter: 2023Q2

REPORT INFORMATION
  Report Type: Spontaneous
  Country: US (occurrence: US)
  Receive Date: 20230621
  Receipt Date: 20230621
  Transmission Date: 20230722
  Serious: Yes (Other)
  Sender: FDA-Public Use
  Company Number: US-ORGANON-O2306USA002204

PATIENT
  Age: 30 Year
  Sex: Female

DRUGS (2)
  1. NEXPLANON [Suspect]
     Active Substance: ETONOGESTREL
     Indication: Contraception
     Dosage: 1 ROD, UPPER LEFT ARM
     Route: 059
  2. COPPER-CONTAINING INTRAUTERINE DEVICE (IUD) [Concomitant]
     Active Substance: COPPER
     Indication: Contraception
     Dosage: UNK (380 MM2)
     Route: 067

REACTIONS (3)
  - Pregnancy with implant contraceptive [Recovered/Resolved]
  - Unintended pregnancy [Recovered/Resolved]
  - Inappropriate schedule of product administration [Unknown]
